FAERS Safety Report 7429459-2 (Version None)
Quarter: 2011Q2

REPORT INFORMATION
  Report Type: 
  Country: None (occurrence: None)
  Receive Date: 20110421
  Receipt Date: 20110411
  Transmission Date: 20111010
  Serious: Yes (Hospitalization)
  Sender: FDA-Public Use
  Company Number: DE-ABBOTT-11P-062-0718023-00

PATIENT
  Age: 24 Year
  Sex: Female

DRUGS (6)
  1. DEXAM [Concomitant]
     Indication: PRODUCT USED FOR UNKNOWN INDICATION
     Route: 048
     Dates: start: 20110311, end: 20110315
  2. ALLOPURINOL [Concomitant]
     Indication: PRODUCT USED FOR UNKNOWN INDICATION
     Dates: start: 20110311, end: 20110315
  3. CHEMOTHERAPY [Concomitant]
     Indication: BREAST CANCER
  4. TRENANTONE [Suspect]
     Indication: PROPHYLAXIS
     Route: 058
     Dates: start: 20101128
  5. TRENANTONE [Suspect]
     Indication: OVARIAN DISORDER
  6. LEVOTHYROXINE SODIUM [Concomitant]
     Indication: HYPOTHYROIDISM
     Route: 048
     Dates: start: 20050101

REACTIONS (1)
  - PNEUMONITIS [None]
